FAERS Safety Report 6655364-5 (Version None)
Quarter: 2010Q1

REPORT INFORMATION
  Report Type: 
  Country: None (occurrence: None)
  Receive Date: 20100329
  Receipt Date: 20100324
  Transmission Date: 20100710
  Serious: Yes (Death)
  Sender: FDA-Public Use
  Company Number: PHEH2010US03286

PATIENT
  Sex: Male
  Weight: 104.31 kg

DRUGS (1)
  1. EXJADE [Suspect]
     Indication: 5Q MINUS SYNDROME
     Dosage: 2000 QD PO
     Route: 048
     Dates: start: 20080801

REACTIONS (1)
  - DEATH [None]
